FAERS Safety Report 7217411-1 (Version None)
Quarter: 2011Q1

REPORT INFORMATION
  Report Type: 
  Country: None (occurrence: None)
  Receive Date: 20110110
  Receipt Date: 20101228
  Transmission Date: 20110831
  Serious: Yes (Other)
  Sender: FDA-Public Use
  Company Number: PHHY2010FR89481

PATIENT
  Age: 73 Year
  Sex: Female

DRUGS (9)
  1. TAREG [Suspect]
     Indication: HYPERTENSION
     Dosage: 1 DF, QD (40 MG DAILY)
     Dates: start: 20080101
  2. TAREG [Suspect]
     Dosage: 1 DF, QD (80 MG DAILY)
  3. PRAVASTATIN [Concomitant]
  4. HALDOL [Concomitant]
  5. TANGANIL [Concomitant]
  6. LAROZYL [Concomitant]
  7. LEVOTHYROX [Concomitant]
  8. ADALAT [Concomitant]
     Dosage: UNK
  9. LEXOMIL [Concomitant]
     Route: 048

REACTIONS (4)
  - SKIN NECROSIS [None]
  - WOUND [None]
  - SKIN LESION [None]
  - SKIN DISCOLOURATION [None]
